FAERS Safety Report 15678152 (Version 1)
Quarter: 2018Q4

REPORT INFORMATION
  Report Type: Spontaneous
  Country: US (occurrence: US)
  Receive Date: 20181201
  Receipt Date: 20181201
  Transmission Date: 20190205
  Serious: No
  Sender: FDA-Public Use
  Company Number: US-TEVA-2018-US-974328

PATIENT
  Age: 68 Year
  Sex: Female

DRUGS (2)
  1. LIDOCAINE W/PRILOCAINE ACTAVIS [Suspect]
     Active Substance: LIDOCAINE\PRILOCAINE
     Indication: LOCAL ANAESTHESIA
  2. LIDOCAINE W/PRILOCAINE ACTAVIS [Suspect]
     Active Substance: LIDOCAINE\PRILOCAINE
     Indication: PAIN
     Dosage: LIDOCAINE2.5 %+ PRILOCAINE 2.5 %
     Route: 065

REACTIONS (1)
  - Drug ineffective [Unknown]

NARRATIVE: CASE EVENT DATE: 20181031
